FAERS Safety Report 6239907-1 (Version None)
Quarter: 2009Q2

REPORT INFORMATION
  Report Type: 
  Country: None (occurrence: None)
  Receive Date: 20090618
  Receipt Date: 20090618
  Transmission Date: 20091009
  Serious: Yes (Life-Threatening, Hospitalization, Disabling, Congenital Anomaly, Other)
  Sender: FDA-Public Use
  Company Number: None

PATIENT
  Age: 20 Year
  Sex: Male
  Weight: 86.1834 kg

DRUGS (2)
  1. GEODON [Suspect]
     Indication: SCHIZOPHRENIA
     Dosage: 100 MG
     Dates: start: 20010104, end: 20090308
  2. LEXAPRO [Suspect]
     Indication: DEPRESSION
     Dosage: 100MG
     Dates: start: 20020314, end: 20070912

REACTIONS (2)
  - MALAISE [None]
  - MULTIPLE DRUG OVERDOSE [None]
